FAERS Safety Report 7645071-4 (Version None)
Quarter: 2011Q3

REPORT INFORMATION
  Report Type: 
  Country: None (occurrence: None)
  Receive Date: 20110725
  Receipt Date: 20110707
  Transmission Date: 20111222
  Serious: Yes (Death, Hospitalization, Other)
  Sender: FDA-Public Use
  Company Number: AUR-APL-2011-04208

PATIENT
  Age: 58 Year
  Sex: Female

DRUGS (7)
  1. CITALOPRAM HYDROBROMIDE [Suspect]
     Indication: PRODUCT USED FOR UNKNOWN INDICATION
     Dosage: 20 MG (20 MG,1 IN 1 D)
  2. BENDROFLUMETHIAZIDE (BENDROFLUMETHIAZIDE) [Suspect]
     Indication: PRODUCT USED FOR UNKNOWN INDICATION
  3. ASPIRIN [Suspect]
     Indication: PRODUCT USED FOR UNKNOWN INDICATION
  4. METFORMIN HCL [Suspect]
     Indication: PRODUCT USED FOR UNKNOWN INDICATION
  5. SIMVASTATIN [Suspect]
     Indication: PRODUCT USED FOR UNKNOWN INDICATION
     Dosage: (20 MG,1 D)
  6. INSULIN [Suspect]
     Indication: PRODUCT USED FOR UNKNOWN INDICATION
  7. AMITRIPTYLINE HCL [Suspect]
     Indication: PRODUCT USED FOR UNKNOWN INDICATION
     Dosage: 50 MG (25 MG,2 IN 1 D)

REACTIONS (20)
  - HEAD INJURY [None]
  - DISSEMINATED INTRAVASCULAR COAGULATION [None]
  - CSF PROTEIN INCREASED [None]
  - CEREBRAL INFARCTION [None]
  - BLOOD CREATININE INCREASED [None]
  - SEROTONIN SYNDROME [None]
  - ATAXIA [None]
  - MUSCLE TWITCHING [None]
  - COMA [None]
  - MULTI-ORGAN FAILURE [None]
  - ARTERIAL HAEMORRHAGE [None]
  - NYSTAGMUS [None]
  - BODY TEMPERATURE INCREASED [None]
  - MUSCLE NECROSIS [None]
  - CONFUSIONAL STATE [None]
  - APRAXIA [None]
  - HEART RATE INCREASED [None]
  - HEPATIC ENZYME INCREASED [None]
  - DIZZINESS [None]
  - RHABDOMYOLYSIS [None]
